FAERS Safety Report 8662109 (Version 3)
Quarter: 2013Q1

REPORT INFORMATION
  Report Type: Other
  Country: FR (occurrence: FR)
  Receive Date: 20120712
  Receipt Date: 20130214
  Transmission Date: 20140127
  Serious: Yes (Hospitalization)
  Sender: FDA-Public Use
  Company Number: FR-ALEXION PHARMACEUTICALS INC.-A201201267

PATIENT
  Age: 84 None
  Sex: Male

DRUGS (6)
  1. SOLIRIS 300MG [Suspect]
     Indication: HAEMOLYTIC URAEMIC SYNDROME
     Dosage: 600 MG, QW
     Route: 042
     Dates: start: 20120312, end: 20120327
  2. MABTHERA [Suspect]
     Dosage: 500 MG, SINGLE
     Route: 042
     Dates: start: 20120213, end: 20120213
  3. MABTHERA [Suspect]
     Dosage: UNK
     Route: 042
     Dates: start: 20120217, end: 20120217
  4. MABTHERA [Suspect]
     Dosage: UNK
     Route: 042
     Dates: start: 20120227, end: 20120227
  5. MABTHERA [Suspect]
     Dosage: UNK
     Route: 042
     Dates: start: 20120305, end: 20120305
  6. PAMIDRONATE DISODIUM [Suspect]
     Dosage: 90 MG, 1 DAY
     Route: 042
     Dates: start: 20120405, end: 20120405

REACTIONS (8)
  - Hypercalcaemia [Unknown]
  - Respiratory distress [Recovered/Resolved]
  - Bronchiolitis [Unknown]
  - Interstitial lung disease [Unknown]
  - Pleural effusion [Unknown]
  - Anaphylactic shock [Recovered/Resolved]
  - Renal impairment [Unknown]
  - Pneumonia [Unknown]
